FAERS Safety Report 5973473-0 (Version None)
Quarter: 2008Q4

REPORT INFORMATION
  Report Type: 
  Country: None (occurrence: None)
  Receive Date: 20081201
  Receipt Date: 20081120
  Transmission Date: 20090506
  Serious: Yes (Other)
  Sender: FDA-Public Use
  Company Number: US-ELI_LILLY_AND_COMPANY-US200810000227

PATIENT
  Sex: Female

DRUGS (11)
  1. BYETTA [Suspect]
     Dosage: 5 UG, 2/D
     Route: 065
     Dates: start: 20080603, end: 20080702
  2. BYETTA [Suspect]
     Dosage: 10 UG, 2/D
     Route: 065
     Dates: start: 20080703, end: 20080903
  3. ASPIRIN [Concomitant]
     Dosage: 81 MG, DAILY (1/D)
     Route: 065
  4. LASIX [Concomitant]
     Dosage: 40 MG, UNKNOWN
     Route: 065
  5. ZOCOR [Concomitant]
     Dosage: 40 MG, UNKNOWN
     Route: 065
  6. GLUCOPHAGE [Concomitant]
     Dosage: 1000 MG, 2/D
     Route: 065
  7. METOPROLOL TARTRATE [Concomitant]
     Dosage: UNK, 2/D
     Route: 065
  8. POTASSIUM CHLORIDE [Concomitant]
     Dosage: 10 MEQ, UNKNOWN
     Route: 065
  9. LEVOTHYROXINE SODIUM [Concomitant]
     Dosage: 75 UG, UNKNOWN
     Route: 065
  10. LISINOPRIL [Concomitant]
     Dosage: 20 MG, 2/D
     Route: 065
  11. PRILOSEC [Concomitant]
     Dosage: 20 MG, UNKNOWN
     Route: 065

REACTIONS (1)
  - PANCREATITIS [None]
